FAERS Safety Report 11279020 (Version 2)
Quarter: 2015Q3

REPORT INFORMATION
  Report Type: Report from Study
  Country: NL (occurrence: NL)
  Receive Date: 20150717
  Receipt Date: 20150818
  Transmission Date: 20151125
  Serious: Yes (Hospitalization)
  Sender: FDA-Public Use
  Company Number: NL-AMGEN-NLDSL2015070832

PATIENT
  Age: 63 Year
  Sex: Female

DRUGS (17)
  1. CIPROFLOXACIN. [Concomitant]
     Active Substance: CIPROFLOXACIN
     Dosage: 500 MG, UNK
  2. METOCLOPRAMIDE. [Concomitant]
     Active Substance: METOCLOPRAMIDE
     Dosage: 10 UNK, UNK
  3. ABSTRAL [Concomitant]
     Active Substance: FENTANYL CITRATE
     Dosage: 600 MUG, UNK
  4. FENTANYL. [Concomitant]
     Active Substance: FENTANYL
     Dosage: 200 MUG, UNK
  5. LYRICA [Concomitant]
     Active Substance: PREGABALIN
     Dosage: 150 UNK, UNK
  6. PANTOPRAZOLE SODIUM. [Concomitant]
     Active Substance: PANTOPRAZOLE SODIUM
     Dosage: 40 UNK, UNK
  7. MOVICOLON [Concomitant]
     Active Substance: POLYETHYLENE GLYCOL 3350\POTASSIUM CHLORIDE\SODIUM BICARBONATE\SODIUM CHLORIDE
     Dosage: UNK
  8. GRANISETRON [Concomitant]
     Active Substance: GRANISETRON
  9. FRAGMIN [Concomitant]
     Active Substance: DALTEPARIN SODIUM
     Dosage: 0.2 UNK, UNK
  10. DEXAMETHASON                       /00016001/ [Concomitant]
     Active Substance: DEXAMETHASONE
     Dosage: 4 MG, UNK
  11. XGEVA [Suspect]
     Active Substance: DENOSUMAB
     Indication: PROPHYLAXIS
     Dosage: 120 MG/1.7 ML, Q4WK
     Route: 058
  12. CLONIDINE. [Concomitant]
     Active Substance: CLONIDINE
     Dosage: 0.025 UNK, UNK
  13. VENTOLIN [Concomitant]
     Active Substance: ALBUTEROL SULFATE
     Dosage: UNK
  14. SERETIDE [Concomitant]
     Active Substance: FLUTICASONE FUROATE\SALMETEROL XINAFOATE
  15. EMEND [Concomitant]
     Active Substance: APREPITANT
     Dosage: 80 MG, UNK
  16. PARACETAMOL [Concomitant]
     Active Substance: ACETAMINOPHEN
     Dosage: 1000 UNK, UNK
  17. CALCICHEW [Concomitant]
     Active Substance: CALCIUM CARBONATE

REACTIONS (3)
  - Liver disorder [Unknown]
  - Biliary tract disorder [Unknown]
  - Platelet count decreased [Unknown]

NARRATIVE: CASE EVENT DATE: 20150630
